FAERS Safety Report 18925717 (Version 2)
Quarter: 2021Q1

REPORT INFORMATION
  Report Type: Report from Study
  Country: None (occurrence: US)
  Receive Date: 20210222
  Receipt Date: 20210330
  Transmission Date: 20210420
  Serious: Yes (Hospitalization, Other)
  Sender: FDA-Public Use
  Company Number: US-ABBVIE-21K-163-3783495-00

PATIENT
  Age: 50 Year
  Sex: Female
  Weight: 76.27 kg

DRUGS (5)
  1. COVID?19 VACCINE [Concomitant]
     Indication: COVID-19 IMMUNISATION
     Dosage: PFIZER
     Route: 030
     Dates: start: 20210303, end: 20210303
  2. HYDROXYCHLOROQUINE [Concomitant]
     Active Substance: HYDROXYCHLOROQUINE
     Indication: RHEUMATOID ARTHRITIS
  3. RINVOQ [Suspect]
     Active Substance: UPADACITINIB
     Indication: RHEUMATOID ARTHRITIS
     Route: 048
     Dates: start: 202008, end: 202102
  4. HYDROXYCHLOROQUINE [Concomitant]
     Active Substance: HYDROXYCHLOROQUINE
     Indication: RHEUMATOID ARTHRITIS
  5. COVID?19 VACCINE [Concomitant]
     Dosage: PFIZER
     Route: 030
     Dates: start: 20210325, end: 20210325

REACTIONS (9)
  - Drug ineffective [Not Recovered/Not Resolved]
  - Mycobacterium tuberculosis complex test positive [Recovering/Resolving]
  - Lung disorder [Recovering/Resolving]
  - Joint stiffness [Not Recovered/Not Resolved]
  - Mobility decreased [Recovering/Resolving]
  - Inflammation [Not Recovered/Not Resolved]
  - Traumatic lung injury [Recovering/Resolving]
  - Pain [Recovering/Resolving]
  - SARS-CoV-2 test positive [Recovered/Resolved]

NARRATIVE: CASE EVENT DATE: 20201113
